FAERS Safety Report 19627261 (Version 2)
Quarter: 2021Q3

REPORT INFORMATION
  Report Type: Spontaneous
  Country: CH (occurrence: CH)
  Receive Date: 20210728
  Receipt Date: 20210813
  Transmission Date: 20211014
  Serious: Yes (Other)
  Sender: FDA-Public Use
  Company Number: CH-MYLANLABS-2021M1041548

PATIENT
  Age: 54 Year
  Sex: Female

DRUGS (3)
  1. DYMISTA [Suspect]
     Active Substance: AZELASTINE HYDROCHLORIDE\FLUTICASONE PROPIONATE
     Indication: HYPERSENSITIVITY
     Dosage: 1 SPRAY IN EACH NOSTRIL, BID (MORNING AND EVENING)
     Route: 045
     Dates: start: 20210615, end: 20210615
  2. ZADITEN [Concomitant]
     Active Substance: KETOTIFEN FUMARATE
     Dosage: UNK (OPHTHALMIC)
     Route: 047
  3. DESLORATADINE. [Concomitant]
     Active Substance: DESLORATADINE
     Dosage: UNK

REACTIONS (3)
  - Swollen tongue [Recovered/Resolved]
  - Nasal congestion [Recovered/Resolved]
  - Reaction to excipient [Unknown]

NARRATIVE: CASE EVENT DATE: 20210616
